FAERS Safety Report 24338317 (Version 1)
Quarter: 2024Q3

REPORT INFORMATION
  Report Type: Spontaneous
  Country: IT (occurrence: IT)
  Receive Date: 20240919
  Receipt Date: 20240919
  Transmission Date: 20241017
  Serious: Yes (Other)
  Sender: AMGEN
  Company Number: None

PATIENT
  Age: 61 Year
  Sex: Male

DRUGS (5)
  1. BEVACIZUMAB [Suspect]
     Active Substance: BEVACIZUMAB
     Indication: Age-related macular degeneration
     Dosage: 1 DOSAGE FORM (GALENIC PREPARATION)
     Route: 031
     Dates: start: 20240223, end: 20240223
  2. BEVACIZUMAB [Suspect]
     Active Substance: BEVACIZUMAB
     Dosage: 1 DOSAGE FORM (GALENIC PREPARATION)
     Route: 031
     Dates: start: 20240719, end: 20240719
  3. BEVACIZUMAB [Suspect]
     Active Substance: BEVACIZUMAB
     Dosage: 1 DOSAGE FORM (GALENIC PREPARATION)
     Route: 031
     Dates: start: 20240517, end: 20240517
  4. BEVACIZUMAB [Suspect]
     Active Substance: BEVACIZUMAB
     Dosage: 1 DOSAGE FORM (GALENIC PREPARATION)
     Route: 031
     Dates: start: 20240119, end: 20240119
  5. BEVACIZUMAB [Suspect]
     Active Substance: BEVACIZUMAB
     Dosage: 1 DOSAGE FORM (GALENIC PREPARATION)
     Route: 031
     Dates: start: 20231215, end: 20231215

REACTIONS (3)
  - Macular degeneration [Not Recovered/Not Resolved]
  - Off label use [Unknown]
  - Drug ineffective for unapproved indication [Not Recovered/Not Resolved]

NARRATIVE: CASE EVENT DATE: 20231215
